FAERS Safety Report 5923060-5 (Version None)
Quarter: 2008Q4

REPORT INFORMATION
  Report Type: 
  Country: None (occurrence: None)
  Receive Date: 20081018
  Receipt Date: 20081006
  Transmission Date: 20090506
  Serious: Yes (Other)
  Sender: FDA-Public Use
  Company Number: US-PFIZER INC-2008084622

PATIENT
  Sex: Female
  Weight: 127.72 kg

DRUGS (5)
  1. LYRICA [Suspect]
     Indication: FIBROMYALGIA
     Route: 048
     Dates: start: 20060101, end: 20080930
  2. GLUCOPHAGE [Concomitant]
  3. ACCUPRO [Concomitant]
  4. NEXIUM [Concomitant]
  5. VICODIN [Concomitant]

REACTIONS (1)
  - SKIN LESION [None]
